FAERS Safety Report 8763150 (Version 1)
Quarter: 2012Q4

REPORT INFORMATION
  Report Type: 
  Country: US (occurrence: US)
  Receive Date: 20120830
  Receipt Date: 20120830
  Transmission Date: 20130627
  Serious: No
  Sender: FDA-Public Use
  Company Number: US-BAYER-2012-089938

PATIENT
  Sex: Male

DRUGS (1)
  1. ULTRAVIST [Suspect]
     Dosage: UNK
     Dates: start: 20120820, end: 20120820

REACTIONS (1)
  - Lip pruritus [None]
